FAERS Safety Report 5495019-6 (Version None)
Quarter: 2007Q4

REPORT INFORMATION
  Report Type: 
  Country: None (occurrence: None)
  Receive Date: 20071024
  Receipt Date: 20071017
  Transmission Date: 20080405
  Serious: Yes (Other)
  Sender: FDA-Public Use
  Company Number: US-WYE-H00748207

PATIENT
  Sex: Female
  Weight: 35 kg

DRUGS (4)
  1. TEMSIROLIMUS [Suspect]
     Indication: RHABDOMYOSARCOMA
     Route: 042
     Dates: start: 20070709, end: 20070903
  2. TEMSIROLIMUS [Suspect]
     Route: 042
     Dates: start: 20070904, end: 20070917
  3. BACTRIM [Concomitant]
     Indication: PROPHYLAXIS
     Dosage: 400 - 80 MG TWICE A DAY ON MONDAY-TUESDAY - WEDNESDAY
     Route: 065
     Dates: start: 20070827
  4. ZYRTEC [Concomitant]
     Indication: SEASONAL ALLERGY
     Dosage: 10 MG DAILY AS NEEDED
     Route: 065
     Dates: start: 20051103

REACTIONS (2)
  - CARDIAC INDEX INCREASED [None]
  - LEFT VENTRICULAR DYSFUNCTION [None]
